FAERS Safety Report 9498271 (Version 1)
Quarter: 2013Q3

REPORT INFORMATION
  Report Type: Spontaneous
  Country: US (occurrence: US)
  Receive Date: 20130904
  Receipt Date: 20130904
  Transmission Date: 20140515
  Serious: Yes (Other)
  Sender: FDA-Public Use
  Company Number: US-PFIZER INC-2013252161

PATIENT
  Sex: Female

DRUGS (1)
  1. LIPITOR [Suspect]
     Indication: HYPERTENSION
     Dosage: 80 MG, UNK
     Dates: start: 2006

REACTIONS (6)
  - Diabetes mellitus [Unknown]
  - Injury [Unknown]
  - Muscle injury [Unknown]
  - Fatigue [Unknown]
  - Nervous system disorder [Unknown]
  - Amnesia [Unknown]
